FAERS Safety Report 24881684 (Version 4)
Quarter: 2025Q1

REPORT INFORMATION
  Report Type: Spontaneous
  Country: US (occurrence: US)
  Receive Date: 20250124
  Receipt Date: 20250317
  Transmission Date: 20250408
  Serious: Yes (Other)
  Sender: ALVOGEN
  Company Number: US-ALVOGEN-2025096081

PATIENT
  Sex: Female

DRUGS (1)
  1. FENTANYL [Suspect]
     Active Substance: FENTANYL
     Indication: Product used for unknown indication
     Route: 062
     Dates: start: 2024

REACTIONS (8)
  - Loss of consciousness [Unknown]
  - Accidental overdose [Unknown]
  - Product packaging quantity issue [Unknown]
  - Device malfunction [Unknown]
  - Device issue [Unknown]
  - Respiratory rate decreased [Unknown]
  - Fatigue [Unknown]
  - Dizziness [Unknown]

NARRATIVE: CASE EVENT DATE: 20240101
